FAERS Safety Report 4905670-7 (Version None)
Quarter: 2006Q1

REPORT INFORMATION
  Report Type: 
  Country: None (occurrence: None)
  Receive Date: 20060113
  Receipt Date: 20050919
  Transmission Date: 20060701
  Serious: Yes (Other)
  Sender: FDA-Public Use
  Company Number: HQWYE551420SEP05

PATIENT
  Sex: Female

DRUGS (5)
  1. PREMPRO [Suspect]
     Indication: HORMONE REPLACEMENT THERAPY
     Route: 065
  2. CYCRIN (MEDROXYPREGESTERONE ACETATE, TABLET UNSPEC) [Suspect]
     Route: 065
  3. ESTROGENIC SUBSTANCE [Suspect]
     Route: 065
  4. PREMARIN [Suspect]
     Route: 065
  5. PROVERA [Suspect]
     Route: 065

REACTIONS (1)
  - BREAST CANCER [None]
